FAERS Safety Report 4910511-8 (Version None)
Quarter: 2006Q1

REPORT INFORMATION
  Report Type: 
  Country: None (occurrence: None)
  Receive Date: 20060209
  Receipt Date: 20060124
  Transmission Date: 20060701
  Serious: Yes (Other)
  Sender: FDA-Public Use
  Company Number: 2006AP000028

PATIENT
  Age: 51 Year
  Sex: Female
  Weight: 35.3806 kg

DRUGS (6)
  1. APO-LEFLUNOMIDE (LEFLUNOMIDE) (10 MG) [Suspect]
     Indication: ARTHRITIS
     Dosage: 10 MG; QD; PO
     Route: 048
     Dates: start: 20051107, end: 20060101
  2. ENBREL [Concomitant]
  3. MS CONTIN [Concomitant]
  4. SERTRALINE [Concomitant]
  5. NABUMETONE [Concomitant]
  6. HYDROMORPH CONTIN [Concomitant]

REACTIONS (5)
  - BLISTER [None]
  - DRY EYE [None]
  - FURUNCLE [None]
  - VASCULITIS [None]
  - VISUAL DISTURBANCE [None]
